FAERS Safety Report 8315641 (Version 3)
Quarter: 2019Q4

REPORT INFORMATION
  Report Type: Spontaneous
  Country: FR (occurrence: FR)
  Receive Date: 20111229
  Receipt Date: 20191223
  Transmission Date: 20200122
  Serious: Yes (Life-Threatening)
  Sender: FDA-Public Use
  Company Number: FR-ROCHE-1024234

PATIENT
  Age: 50 Year
  Sex: Female

DRUGS (14)
  1. EPREX [Suspect]
     Active Substance: ERYTHROPOIETIN
     Indication: ANAEMIA
     Route: 065
     Dates: start: 20111024
  2. CORTANCYL [Concomitant]
     Active Substance: PREDNISONE
     Route: 065
  3. LASILIX [FUROSEMIDE] [Concomitant]
     Active Substance: FUROSEMIDE
     Route: 065
  4. CELLCEPT [Suspect]
     Active Substance: MYCOPHENOLATE MOFETIL\MYCOPHENOLATE MOFETIL HYDROCHLORIDE
     Indication: IMMUNOSUPPRESSION
     Route: 065
     Dates: start: 20111024
  5. PROGRAF [Suspect]
     Active Substance: TACROLIMUS
     Indication: IMMUNOSUPPRESSION
     Route: 065
     Dates: start: 20111107, end: 20111116
  6. CICLOSPORINE [Suspect]
     Active Substance: CYCLOSPORINE
     Route: 065
     Dates: start: 20111116
  7. CICLOSPORINE [Suspect]
     Active Substance: CYCLOSPORINE
     Indication: IMMUNOSUPPRESSION
     Route: 065
     Dates: start: 20111024, end: 20111109
  8. INVANZ [Suspect]
     Active Substance: ERTAPENEM SODIUM
     Indication: INFECTION
     Route: 065
     Dates: start: 20111110, end: 20111114
  9. VFEND [Suspect]
     Active Substance: VORICONAZOLE
     Indication: INFECTION
     Route: 065
     Dates: start: 20111024
  10. ESOMEPRAZOLE. [Concomitant]
     Active Substance: ESOMEPRAZOLE MAGNESIUM
     Route: 065
  11. FOLINORAL [Concomitant]
     Active Substance: LEUCOVORIN CALCIUM
     Route: 065
  12. UMULINE [Concomitant]
     Active Substance: INSULIN HUMAN
  13. DAFALGAN [Concomitant]
     Active Substance: ACETAMINOPHEN
     Route: 065
  14. ZELITREX [Concomitant]
     Active Substance: VALACYCLOVIR HYDROCHLORIDE
     Route: 065

REACTIONS (2)
  - Posterior reversible encephalopathy syndrome [Recovered/Resolved]
  - Partial seizures [Recovering/Resolving]

NARRATIVE: CASE EVENT DATE: 20111114
